FAERS Safety Report 11377417 (Version 2)
Quarter: 2015Q3

REPORT INFORMATION
  Report Type: Spontaneous
  Country: US (occurrence: US)
  Receive Date: 20150811
  Receipt Date: 20150903
  Transmission Date: 20151125
  Serious: No
  Sender: FDA-Public Use
  Company Number: US-ELI_LILLY_AND_COMPANY-US200812005302

PATIENT
  Age: 59 Year
  Sex: Male

DRUGS (10)
  1. CATAPRES /00171101/ [Concomitant]
     Active Substance: CLONIDINE
  2. ADVAIR HFA [Concomitant]
     Active Substance: FLUTICASONE PROPIONATE\SALMETEROL XINAFOATE
  3. HUMULIN R [Suspect]
     Active Substance: INSULIN HUMAN
  4. ASPIRIN. [Concomitant]
     Active Substance: ASPIRIN
  5. HUMALOG [Suspect]
     Active Substance: INSULIN LISPRO
  6. HYDRALAZINE [Concomitant]
     Active Substance: HYDRALAZINE HYDROCHLORIDE
  7. NIFEDIPINE. [Concomitant]
     Active Substance: NIFEDIPINE
  8. DIOVAN [Concomitant]
     Active Substance: VALSARTAN
  9. LIPITOR [Concomitant]
     Active Substance: ATORVASTATIN CALCIUM
  10. FERROUS FUMARATE W/FOLIC ACID [Concomitant]

REACTIONS (8)
  - Disturbance in attention [Not Recovered/Not Resolved]
  - Nervous system disorder [Not Recovered/Not Resolved]
  - Hypoacusis [Not Recovered/Not Resolved]
  - Hypoglycaemia [Recovered/Resolved]
  - Peripheral coldness [Not Recovered/Not Resolved]
  - Insomnia [Unknown]
  - Renal disorder [Not Recovered/Not Resolved]
  - Blood glucose increased [Unknown]

NARRATIVE: CASE EVENT DATE: 2003
